FAERS Safety Report 10245554 (Version 3)
Quarter: 2014Q3

REPORT INFORMATION
  Report Type: Spontaneous
  Country: JP (occurrence: JP)
  Receive Date: 20140619
  Receipt Date: 20140818
  Transmission Date: 20150326
  Serious: Yes (Hospitalization)
  Sender: FDA-Public Use
  Company Number: JP-ROCHE-1419952

PATIENT
  Age: 62 Year
  Sex: Female
  Weight: 74 kg

DRUGS (10)
  1. LUCENTIS [Suspect]
     Active Substance: RANIBIZUMAB
     Dosage: IN RIGHT EYE
     Route: 050
     Dates: start: 20140519
  2. EQUA [Concomitant]
     Active Substance: VILDAGLIPTIN
  3. LUCENTIS [Suspect]
     Active Substance: RANIBIZUMAB
     Dosage: IN LEFT EYE
     Route: 050
     Dates: start: 20140526
  4. LUCENTIS [Suspect]
     Active Substance: RANIBIZUMAB
     Dosage: IN LEFT EYE
     Route: 050
     Dates: start: 20140421
  5. MICARDIS [Concomitant]
     Active Substance: TELMISARTAN
  6. CARDENALIN [Concomitant]
     Active Substance: DOXAZOSIN MESYLATE
     Route: 065
     Dates: start: 20130906
  7. LUCENTIS [Suspect]
     Active Substance: RANIBIZUMAB
     Indication: DIABETIC RETINAL OEDEMA
     Dosage: IN RIGHT EYE
     Route: 050
     Dates: start: 20140414
  8. METGLUCO [Concomitant]
     Active Substance: METFORMIN HYDROCHLORIDE
  9. CALBLOCK [Concomitant]
     Active Substance: AZELNIDIPINE
     Route: 065
     Dates: start: 20130802
  10. ADALAT CC [Concomitant]
     Active Substance: NIFEDIPINE
     Route: 065
     Dates: start: 20140311, end: 20140330

REACTIONS (2)
  - Inappropriate schedule of drug administration [Unknown]
  - Brain stem infarction [Recovering/Resolving]

NARRATIVE: CASE EVENT DATE: 20140527
